FAERS Safety Report 8986709 (Version 1)
Quarter: 2012Q4

REPORT INFORMATION
  Report Type: 
  Country: US (occurrence: US)
  Receive Date: 20121227
  Receipt Date: 20121227
  Transmission Date: 20130627
  Serious: Yes (Other)
  Sender: FDA-Public Use
  Company Number: PHEH2012US025307

PATIENT
  Age: 62 Year
  Sex: Female

DRUGS (6)
  1. EXFORGE [Suspect]
     Dosage: UNK UKN, UNK
     Dates: start: 2011
  2. GLIMEPIRIDE [Concomitant]
  3. OMEPRAZOLE [Concomitant]
  4. ONDANSETRON HCL [Concomitant]
  5. PROCHLORPERAZINE MALEATE [Concomitant]
  6. CHEMOTHERAPEUTICS [Concomitant]

REACTIONS (3)
  - Uterine cancer [Unknown]
  - Alopecia [Unknown]
  - Nausea [Unknown]
